FAERS Safety Report 21914155 (Version 1)
Quarter: 2023Q1

REPORT INFORMATION
  Report Type: Spontaneous
  Country: US (occurrence: US)
  Receive Date: 20230126
  Receipt Date: 20230126
  Transmission Date: 20230417
  Serious: No
  Sender: FDA-Public Use
  Company Number: US-ALLERGAN-2229816US

PATIENT
  Sex: Female
  Weight: 84.368 kg

DRUGS (10)
  1. BOTOX [Suspect]
     Active Substance: ONABOTULINUMTOXINA
     Indication: Migraine
     Dosage: 20 UNITS, SINGLE
     Dates: start: 20220902, end: 20220902
  2. BOTOX [Suspect]
     Active Substance: ONABOTULINUMTOXINA
     Indication: Skin wrinkling
     Dosage: 10 UNITS, SINGLE
     Dates: start: 20220902, end: 20220902
  3. BOTOX [Suspect]
     Active Substance: ONABOTULINUMTOXINA
     Indication: Skin wrinkling
     Dosage: 5 UNITS, SINGLE
     Dates: start: 20220902, end: 20220902
  4. BOTOX [Suspect]
     Active Substance: ONABOTULINUMTOXINA
     Indication: Skin wrinkling
     Dosage: 30 UNITS, SINGLE
     Dates: start: 20220902, end: 20220902
  5. BOTOX [Suspect]
     Active Substance: ONABOTULINUMTOXINA
     Indication: Skin wrinkling
     Dosage: 40 UNITS, SINGLE
     Dates: start: 20220902, end: 20220902
  6. BOTOX [Suspect]
     Active Substance: ONABOTULINUMTOXINA
     Indication: Skin wrinkling
     Dosage: 30 UNITS, SINGLE
     Dates: start: 20220902, end: 20220902
  7. BOTOX [Suspect]
     Active Substance: ONABOTULINUMTOXINA
     Indication: Skin wrinkling
     Dosage: 20 UNITS, SINGLE
     Dates: start: 20220902, end: 20220902
  8. BOTOX [Suspect]
     Active Substance: ONABOTULINUMTOXINA
     Indication: Skin wrinkling
     Dosage: UNK UNK, SINGLE
     Route: 030
     Dates: start: 20170106, end: 20170106
  9. AJOVY [Suspect]
     Active Substance: FREMANEZUMAB-VFRM
     Indication: Migraine
  10. MAXALT [Concomitant]
     Active Substance: RIZATRIPTAN BENZOATE
     Indication: Migraine
     Dosage: UNK

REACTIONS (5)
  - Injection site papule [Unknown]
  - Injection site discolouration [Unknown]
  - Injection site pruritus [Unknown]
  - Injection site warmth [Unknown]
  - Therapeutic response shortened [Unknown]
